FAERS Safety Report 7075471-5 (Version None)
Quarter: 2010Q4

REPORT INFORMATION
  Report Type: 
  Country: None (occurrence: None)
  Receive Date: 20101030
  Receipt Date: 20100910
  Transmission Date: 20110411
  Serious: No
  Sender: FDA-Public Use
  Company Number: US-WYE-H17584710

PATIENT
  Sex: Female
  Weight: 54.48 kg

DRUGS (3)
  1. PRISTIQ [Suspect]
     Indication: DEPRESSION
     Dosage: CUTTING THE 100 MG TABLET IN HALF AND TAKING HALF IN THE MORNING AND HALF IN THE EVENING
     Dates: start: 20100101
  2. ALPRAZOLAM [Concomitant]
  3. FENTANYL CITRATE [Concomitant]

REACTIONS (2)
  - ABDOMINAL PAIN [None]
  - DRUG EFFECT DECREASED [None]
